FAERS Safety Report 8607097-3 (Version None)
Quarter: 2012Q3

REPORT INFORMATION
  Report Type: 
  Country: None (occurrence: None)
  Receive Date: 20120821
  Receipt Date: 20120808
  Transmission Date: 20120928
  Serious: Yes (Life-Threatening, Hospitalization)
  Sender: FDA-Public Use
  Company Number: NL-BIOGENIDEC-2012BI025122

PATIENT
  Age: 45 Year
  Sex: Female
  Weight: 60 kg

DRUGS (13)
  1. LARIAM [Concomitant]
     Route: 048
     Dates: start: 20120731
  2. OMEPRAZOLE [Concomitant]
     Route: 048
     Dates: start: 20120723, end: 20120724
  3. FRAXIPARINE [Concomitant]
     Route: 058
     Dates: start: 20120723
  4. LARIAM [Concomitant]
     Route: 048
     Dates: start: 20120723, end: 20120727
  5. FLUMAZENIL [Concomitant]
  6. MIRTAZAPINE [Concomitant]
     Route: 048
     Dates: start: 20120723, end: 20120724
  7. OXAZEPAM [Concomitant]
     Route: 048
     Dates: start: 20120723, end: 20120725
  8. ACETAMINOPHEN [Concomitant]
     Route: 048
     Dates: start: 20120723
  9. FLUMAZENIL [Concomitant]
     Route: 042
     Dates: start: 20120725, end: 20120725
  10. KYTRIL [Concomitant]
     Route: 042
     Dates: start: 20120723, end: 20120725
  11. TYSABRI [Suspect]
     Indication: MULTIPLE SCLEROSIS
     Route: 042
     Dates: start: 20080411, end: 20120626
  12. LARIAM [Concomitant]
     Route: 048
     Dates: start: 20120803
  13. PRIMPERAN TAB [Concomitant]
     Dates: start: 20120723

REACTIONS (1)
  - PROGRESSIVE MULTIFOCAL LEUKOENCEPHALOPATHY [None]
